FAERS Safety Report 10387585 (Version 2)
Quarter: 2014Q3

REPORT INFORMATION
  Report Type: Spontaneous
  Country: CL (occurrence: CL)
  Receive Date: 20140815
  Receipt Date: 20140818
  Transmission Date: 20150326
  Serious: Yes (Hospitalization, Other)
  Sender: FDA-Public Use
  Company Number: CL-PFIZER INC-2014226802

PATIENT
  Sex: Male

DRUGS (2)
  1. LYRICA [Suspect]
     Active Substance: PREGABALIN
     Dosage: UNK
  2. CELEBRA [Suspect]
     Active Substance: CELECOXIB
     Dosage: 1 DF, 2X/DAY (EVERY 12 HRS)

REACTIONS (2)
  - Haemorrhage [Unknown]
  - Intervertebral disc protrusion [Unknown]
